FAERS Safety Report 22172134 (Version 2)
Quarter: 2023Q2

REPORT INFORMATION
  Report Type: Spontaneous
  Country: US (occurrence: US)
  Receive Date: 20230404
  Receipt Date: 20230417
  Transmission Date: 20230722
  Serious: Yes (Other)
  Sender: FDA-Public Use
  Company Number: US-002147023-NVSC2023US076477

PATIENT
  Age: 96 Year
  Sex: Female

DRUGS (8)
  1. BEOVU [Suspect]
     Active Substance: BROLUCIZUMAB-DBLL
     Indication: Age-related macular degeneration
     Dosage: UNK (TREAT AND EXTEND RIGHT EYE, OD, TIME PERIOD OF 56)
     Route: 065
     Dates: start: 20191025
  2. BEOVU [Suspect]
     Active Substance: BROLUCIZUMAB-DBLL
     Dosage: UNK (TREAT AND EXTEND RIGHT EYE, OD, TIME PERIOD OF 56)
     Route: 065
     Dates: start: 20191220
  3. BEOVU [Suspect]
     Active Substance: BROLUCIZUMAB-DBLL
     Dosage: UNK (TREAT AND EXTEND RIGHT EYE, OD, TIME PERIOD OF 50)
     Route: 065
     Dates: start: 20200208
  4. BEOVU [Suspect]
     Active Substance: BROLUCIZUMAB-DBLL
     Dosage: UNK (TREAT AND EXTEND RIGHT EYE, OD, TIME PERIOD OF 70)
     Route: 065
     Dates: start: 20200418
  5. BEOVU [Suspect]
     Active Substance: BROLUCIZUMAB-DBLL
     Dosage: UNK (TREAT AND EXTEND RIGHT EYE, OD, TIME PERIOD OF 70)
     Route: 065
     Dates: start: 20200627
  6. BEOVU [Suspect]
     Active Substance: BROLUCIZUMAB-DBLL
     Dosage: UNK (TREAT AND EXTEND RIGHT EYE, OD, TIME PERIOD OF 70)
     Route: 065
     Dates: start: 20200905
  7. BEOVU [Suspect]
     Active Substance: BROLUCIZUMAB-DBLL
     Dosage: UNK (TREAT AND EXTEND RIGHT EYE, OD, TIME PERIOD OF 67)
     Route: 065
     Dates: start: 20201111
  8. BEOVU [Suspect]
     Active Substance: BROLUCIZUMAB-DBLL
     Dosage: UNK (TREAT AND EXTEND RIGHT EYE, OD, TIME PERIOD OF 73)
     Route: 065
     Dates: start: 20210123

REACTIONS (2)
  - Iridocyclitis [Recovered/Resolved]
  - Iritis [Unknown]

NARRATIVE: CASE EVENT DATE: 20210301
